FAERS Safety Report 6068975-5 (Version None)
Quarter: 2009Q1

REPORT INFORMATION
  Report Type: 
  Country: None (occurrence: None)
  Receive Date: 20090206
  Receipt Date: 20090128
  Transmission Date: 20090719
  Serious: Yes (Hospitalization)
  Sender: FDA-Public Use
  Company Number: ID-WATSON-2009-00455

PATIENT
  Age: 41 Year
  Sex: Male

DRUGS (2)
  1. DEXAMETHASONE TAB [Suspect]
     Indication: MULTIPLE MYELOMA
     Dosage: 40 MG, DAILY (DAY 1-4)
     Route: 042
  2. CYCLOPHOSPHAMIDE [Suspect]
     Indication: MULTIPLE MYELOMA
     Dosage: 400 MG, DAILY (DAY 1-4)
     Route: 042

REACTIONS (1)
  - HEPATIC STEATOSIS [None]
